FAERS Safety Report 21386757 (Version 2)
Quarter: 2022Q3

REPORT INFORMATION
  Report Type: Spontaneous
  Country: US (occurrence: US)
  Receive Date: 20220928
  Receipt Date: 20220929
  Transmission Date: 20221027
  Serious: No
  Sender: FDA-Public Use
  Company Number: US-009507513-2208USA011440

PATIENT
  Sex: Male
  Weight: 121.5 kg

DRUGS (3)
  1. VERQUVO [Suspect]
     Active Substance: VERICIGUAT
     Indication: Cardiac failure
     Dosage: 2.5 MILLIGRAM, QD
     Route: 048
  2. VERQUVO [Suspect]
     Active Substance: VERICIGUAT
     Dosage: 5 MILLIGRAM, QD
     Route: 048
  3. VERQUVO [Suspect]
     Active Substance: VERICIGUAT
     Dosage: 10 MILLIGRAM, QD
     Route: 048

REACTIONS (2)
  - Amnesia [Recovered/Resolved]
  - Dizziness [Recovered/Resolved]
